FAERS Safety Report 7916785-3 (Version None)
Quarter: 2011Q4

REPORT INFORMATION
  Report Type: 
  Country: None (occurrence: None)
  Receive Date: 20111116
  Receipt Date: 20111107
  Transmission Date: 20120403
  Serious: Yes (Hospitalization)
  Sender: FDA-Public Use
  Company Number: US-ELI_LILLY_AND_COMPANY-US201111002455

PATIENT
  Age: 59 Year
  Sex: Female

DRUGS (1)
  1. HUMULIN 70/30 [Suspect]

REACTIONS (1)
  - CEREBROVASCULAR ACCIDENT [None]
